FAERS Safety Report 9458197 (Version 1)
Quarter: 2013Q3

REPORT INFORMATION
  Report Type: Spontaneous
  Country: US (occurrence: None)
  Receive Date: 20130812
  Receipt Date: 20130812
  Transmission Date: 20140515
  Serious: No
  Sender: FDA-Public Use
  Company Number: None

PATIENT
  Age: 27 None
  Sex: Female
  Weight: 53.07 kg

DRUGS (1)
  1. RECLIPSEN [Suspect]
     Dosage: 0.15-30MG. 1 TABLET DAILY ORALLY
     Route: 048
     Dates: start: 20130702, end: 20130810

REACTIONS (2)
  - Vaginal haemorrhage [None]
  - Haemorrhage [None]
